FAERS Safety Report 6130548-3 (Version None)
Quarter: 2009Q1

REPORT INFORMATION
  Report Type: 
  Country: None (occurrence: None)
  Receive Date: 20090323
  Receipt Date: 20090309
  Transmission Date: 20090719
  Serious: Yes (Other)
  Sender: FDA-Public Use
  Company Number: 57464

PATIENT
  Age: 61 Year
  Sex: Male

DRUGS (1)
  1. DILTIAZEM HCL [Suspect]
     Dosage: 250MG/250CC AT 30CC/HR
     Dates: start: 20090307

REACTIONS (2)
  - INCORRECT ROUTE OF DRUG ADMINISTRATION [None]
  - MEDICATION ERROR [None]
